FAERS Safety Report 4490053-7 (Version None)
Quarter: 2004Q4

REPORT INFORMATION
  Report Type: 
  Country: None (occurrence: None)
  Receive Date: 20041101
  Receipt Date: 20041028
  Transmission Date: 20050328
  Serious: Yes (Death)
  Sender: FDA-Public Use
  Company Number: PHBS2004CA14500

PATIENT
  Age: 39 Year
  Sex: Male

DRUGS (2)
  1. TEGRETOL [Suspect]
     Indication: TRIGEMINAL NEURALGIA
     Route: 048
  2. ALCOHOL [Suspect]

REACTIONS (3)
  - DEATH [None]
  - FATTY LIVER ALCOHOLIC [None]
  - HEPATIC STEATOSIS [None]
